FAERS Safety Report 21386041 (Version 1)
Quarter: 2022Q3

REPORT INFORMATION
  Report Type: Spontaneous
  Country: US (occurrence: None)
  Receive Date: 20220926
  Receipt Date: 20220926
  Transmission Date: 20221026
  Serious: Yes (Hospitalization)
  Sender: FDA-Public Use
  Company Number: None

PATIENT
  Sex: Female

DRUGS (3)
  1. PULMOZYME [Suspect]
     Active Substance: DORNASE ALFA
     Indication: Respiratory disorder
     Dosage: 2.5MG/2.5ML??INHALE 2.5 ML VIA NEBULIZER EVERY 12 HOURS ?
     Route: 055
     Dates: start: 20220630
  2. ALBUTEROL [Concomitant]
     Active Substance: ALBUTEROL
  3. BUDESONIDE SUS [Concomitant]

REACTIONS (1)
  - Viral infection [None]
